FAERS Safety Report 8416033 (Version 2)
Quarter: 2013Q1

REPORT INFORMATION
  Report Type: Spontaneous
  Country: US (occurrence: US)
  Receive Date: 20120218
  Receipt Date: 20130119
  Transmission Date: 20140127
  Serious: No
  Sender: FDA-Public Use
  Company Number: US-ALLERGAN-1114967US

PATIENT
  Age: 63 Year
  Sex: Female

DRUGS (1)
  1. BOTOX? [Suspect]
     Indication: DYSTONIA
     Dosage: UNK
     Route: 030
     Dates: start: 20111109, end: 20111109

REACTIONS (2)
  - Erythema [Recovered/Resolved]
  - Rash papular [Recovered/Resolved]
